FAERS Safety Report 8942221 (Version 1)
Quarter: 2012Q4

REPORT INFORMATION
  Report Type: Spontaneous
  Country: US (occurrence: None)
  Receive Date: 20121129
  Receipt Date: 20121129
  Transmission Date: 20130627
  Serious: Yes (Other)
  Sender: FDA-Public Use
  Company Number: None

PATIENT
  Age: 55 Year
  Sex: Male
  Weight: 104.33 kg

DRUGS (1)
  1. ATORVASTATIN [Suspect]
     Indication: HYPERLIPIDEMIA
     Dosage: 10 mg daily po
     Route: 048
     Dates: start: 20120301, end: 20120701

REACTIONS (4)
  - Arthralgia [None]
  - Fatigue [None]
  - Hepatic function abnormal [None]
  - Renal impairment [None]
